FAERS Safety Report 7454441-9 (Version None)
Quarter: 2011Q2

REPORT INFORMATION
  Report Type: 
  Country: None (occurrence: None)
  Receive Date: 20110425
  Receipt Date: 20110412
  Transmission Date: 20111010
  Serious: Yes (Hospitalization)
  Sender: FDA-Public Use
  Company Number: LEO-2011-00218

PATIENT
  Age: 40 Year
  Sex: Male
  Weight: 61 kg

DRUGS (10)
  1. INNOHEP [Suspect]
     Indication: EMBOLISM VENOUS
     Dosage: 11000 IU, 1 IN 1 D, SUBCUTAENOUS
     Route: 058
     Dates: start: 20101202
  2. DEXAMETHASONE [Concomitant]
  3. WARFARIN SODIUM [Suspect]
     Indication: EMBOLISM VENOUS
     Dosage: 2.5 MG (2.5 MG, 1 IN 1 D), ORAL; 5 MG (5 MG, 1 IN 1 D), ORAL
     Route: 048
     Dates: start: 20101202
  4. WARFARIN SODIUM [Suspect]
     Indication: EMBOLISM VENOUS
     Dosage: 2.5 MG (2.5 MG, 1 IN 1 D), ORAL; 5 MG (5 MG, 1 IN 1 D), ORAL
     Route: 048
     Dates: end: 20110221
  5. PHENYTOIN [Concomitant]
  6. CLEXANE (ENOXAPARIN SODIUM) [Concomitant]
  7. EPTOIN (PHENYTOIN SODIUM) [Concomitant]
  8. MANNITOL [Concomitant]
  9. ICY PAN [Concomitant]
  10. MONOCEF (CEFALEXIN) [Concomitant]

REACTIONS (7)
  - LOWER RESPIRATORY TRACT INFECTION [None]
  - HAEMORRHAGE INTRACRANIAL [None]
  - DIARRHOEA [None]
  - HEADACHE [None]
  - FACIAL PARESIS [None]
  - METASTASES TO CENTRAL NERVOUS SYSTEM [None]
  - DEPRESSED LEVEL OF CONSCIOUSNESS [None]
